FAERS Safety Report 18779382 (Version 1)
Quarter: 2021Q1

REPORT INFORMATION
  Report Type: Spontaneous
  Country: CN (occurrence: CN)
  Receive Date: 20210125
  Receipt Date: 20210125
  Transmission Date: 20210419
  Serious: Yes (Life-Threatening, Hospitalization, Other)
  Sender: FDA-Public Use
  Company Number: CN-STRIDES ARCOLAB LIMITED-2021SP001001

PATIENT
  Age: 66 Year
  Sex: Male
  Weight: 80 kg

DRUGS (1)
  1. VANCOMYCIN [Suspect]
     Active Substance: VANCOMYCIN
     Indication: ANTIBIOTIC PROPHYLAXIS
     Dosage: TOPICAL SPRAYING OF VANCOMYCIN (3 GRAM) ON THE DURA MATER AND INTO THE MASCULARIS
     Route: 061

REACTIONS (7)
  - Anaphylactic reaction [Unknown]
  - Coma [Unknown]
  - Shock [Unknown]
  - Ventricular fibrillation [Unknown]
  - Hypoxic-ischaemic encephalopathy [Unknown]
  - Circulatory collapse [Unknown]
  - Cardiac arrest [Recovered/Resolved]
